FAERS Safety Report 17308169 (Version 1)
Quarter: 2020Q1

REPORT INFORMATION
  Report Type: Spontaneous
  Country: JP (occurrence: JP)
  Receive Date: 20200123
  Receipt Date: 20200123
  Transmission Date: 20200409
  Serious: Yes (Death, Other)
  Sender: FDA-Public Use
  Company Number: NVSJ2020JP000461

PATIENT
  Age: 50 Year
  Sex: Male

DRUGS (2)
  1. CARBOPLATIN. [Suspect]
     Active Substance: CARBOPLATIN
     Indication: SMALL CELL LUNG CANCER
     Route: 065
  2. ETOPOSIDE. [Suspect]
     Active Substance: ETOPOSIDE
     Indication: SMALL CELL LUNG CANCER
     Dosage: UNK
     Route: 065

REACTIONS (10)
  - Malignant neoplasm progression [Unknown]
  - Renal disorder [Unknown]
  - Liver disorder [Unknown]
  - Hyperkalaemia [Unknown]
  - Metastases to liver [Unknown]
  - Malaise [Unknown]
  - Anaemia [Unknown]
  - Shock haemorrhagic [Fatal]
  - Concomitant disease aggravated [Unknown]
  - Nausea [Unknown]
